FAERS Safety Report 18501346 (Version 1)
Quarter: 2020Q4

REPORT INFORMATION
  Report Type: Spontaneous
  Country: FR (occurrence: FR)
  Receive Date: 20201113
  Receipt Date: 20201113
  Transmission Date: 20210114
  Serious: Yes (Other)
  Sender: FDA-Public Use
  Company Number: FR-TEVA-2020-FR-1847964

PATIENT
  Age: 29 Year
  Sex: Male
  Weight: 97 kg

DRUGS (4)
  1. AUGMENTIN [Suspect]
     Active Substance: AMOXICILLIN\CLAVULANATE POTASSIUM
     Indication: PROPHYLAXIS
     Dosage: 2 GRAM
     Route: 048
     Dates: start: 20200710, end: 20200721
  2. AVAMYS [Concomitant]
     Active Substance: FLUTICASONE FUROATE
     Route: 048
  3. OFLOXACINE [Suspect]
     Active Substance: OFLOXACIN
     Indication: PROPHYLAXIS
     Dosage: 400 MG
     Route: 048
     Dates: start: 20200710, end: 20200721
  4. CETIRIZINE (DICHLORHYDRATE DE) [Concomitant]
     Active Substance: CETIRIZINE HYDROCHLORIDE
     Route: 048

REACTIONS (4)
  - Feeling abnormal [Recovering/Resolving]
  - Depression [Recovering/Resolving]
  - Anxiety [Recovering/Resolving]
  - Depressed mood [Recovering/Resolving]

NARRATIVE: CASE EVENT DATE: 20200715
